FAERS Safety Report 6386332-9 (Version None)
Quarter: 2009Q4

REPORT INFORMATION
  Report Type: 
  Country: None (occurrence: None)
  Receive Date: 20091002
  Receipt Date: 20090923
  Transmission Date: 20100525
  Serious: Yes (Other)
  Sender: FDA-Public Use
  Company Number: US-ASTRAZENECA-2009SE05367

PATIENT
  Age: 51 Year
  Sex: Female
  Weight: 113.4 kg

DRUGS (7)
  1. SYMBICORT [Suspect]
     Indication: ASTHMA
     Dosage: 160/4.5 MCG BID
     Route: 055
     Dates: start: 20090709, end: 20090716
  2. LISINOPRIL [Concomitant]
  3. HYDROCHLOROTHIAZIDE [Concomitant]
  4. MULTIVIT [Concomitant]
  5. ALBUTEROL [Concomitant]
  6. ONE A DAY WOMENS 50 + [Concomitant]
     Indication: VITAMIN SUPPLEMENTATION
  7. LISONOPRIL+HCTZ [Concomitant]
     Indication: BLOOD PRESSURE

REACTIONS (6)
  - FOREIGN BODY SENSATION IN EYES [None]
  - JOINT STIFFNESS [None]
  - MUSCULOSKELETAL STIFFNESS [None]
  - ORAL HERPES [None]
  - PHARYNGEAL OEDEMA [None]
  - PRURITUS [None]
